FAERS Safety Report 9885518 (Version 1)
Quarter: 2014Q1

REPORT INFORMATION
  Report Type: Spontaneous
  Country: GB (occurrence: GB)
  Receive Date: 20140210
  Receipt Date: 20140210
  Transmission Date: 20141002
  Serious: Yes (Other)
  Sender: FDA-Public Use
  Company Number: GB-NOVOPROD-399250

PATIENT
  Age: 61 Year
  Sex: Female
  Weight: 67.2 kg

DRUGS (7)
  1. VICTOZA [Suspect]
     Indication: BODY MASS INDEX INCREASED
     Dosage: 1.2 MG, QD
     Route: 058
     Dates: start: 20131106, end: 20131211
  2. AMLODIPINE [Concomitant]
     Dosage: 10 MG, QD
     Route: 065
  3. ATORVASTATIN [Concomitant]
     Dosage: 40 MG, QD
     Route: 065
  4. LEVEMIR [Concomitant]
     Dosage: 1 DF, BID
     Route: 065
  5. METFORMIN [Concomitant]
     Dosage: 1 G, BID
     Route: 065
  6. OMEPRAZOLE [Concomitant]
     Dosage: 20 MG, QD
     Route: 065
  7. RAMIPRIL [Concomitant]
     Dosage: 10 MG, QD
     Route: 065

REACTIONS (4)
  - Abdominal tenderness [Recovered/Resolved]
  - Abdominal discomfort [Recovered/Resolved]
  - Nausea [Recovered/Resolved]
  - Off label use [Unknown]
